FAERS Safety Report 12584686 (Version 1)
Quarter: 2016Q3

REPORT INFORMATION
  Report Type: Spontaneous
  Country: US (occurrence: US)
  Receive Date: 20160722
  Receipt Date: 20160722
  Transmission Date: 20161109
  Serious: No
  Sender: FDA-Public Use
  Company Number: US-CELGENEUS-USA-2016074607

PATIENT
  Sex: Female
  Weight: 127.12 kg

DRUGS (1)
  1. POMALYST [Suspect]
     Active Substance: POMALIDOMIDE
     Indication: PLASMA CELL MYELOMA
     Dosage: 2 MILLIGRAM
     Route: 048
     Dates: start: 20150714, end: 201606

REACTIONS (4)
  - Constipation [Unknown]
  - Spinal column stenosis [Unknown]
  - Flatulence [Unknown]
  - Chromaturia [Unknown]
